FAERS Safety Report 7465553-8 (Version None)
Quarter: 2011Q2

REPORT INFORMATION
  Report Type: 
  Country: None (occurrence: None)
  Receive Date: 20110509
  Receipt Date: 20110429
  Transmission Date: 20111010
  Serious: Yes (Other)
  Sender: FDA-Public Use
  Company Number: CA-ROCHE-774674

PATIENT
  Sex: Male

DRUGS (7)
  1. ZOFRAN [Concomitant]
  2. KEPPRA [Concomitant]
  3. PLAVIX [Concomitant]
  4. PROCARBAZINE [Concomitant]
  5. AVASTIN [Suspect]
     Indication: NEOPLASM
     Dosage: FORM: INFUSION
     Route: 042
     Dates: start: 20101112
  6. LIPITOR [Concomitant]
  7. TEMODAL [Concomitant]

REACTIONS (15)
  - BLOOD CREATINE PHOSPHOKINASE INCREASED [None]
  - ASPARTATE AMINOTRANSFERASE INCREASED [None]
  - BLOOD GLUCOSE INCREASED [None]
  - GAMMA-GLUTAMYLTRANSFERASE INCREASED [None]
  - BLOOD TRIGLYCERIDES INCREASED [None]
  - SERUM FERRITIN INCREASED [None]
  - BLOOD BILIRUBIN INCREASED [None]
  - ALANINE AMINOTRANSFERASE INCREASED [None]
  - HIGH DENSITY LIPOPROTEIN DECREASED [None]
  - IRON BINDING CAPACITY UNSATURATED INCREASED [None]
  - THYROXINE FREE DECREASED [None]
  - BRAIN OEDEMA [None]
  - MEAN PLATELET VOLUME DECREASED [None]
  - RED BLOOD CELL SEDIMENTATION RATE INCREASED [None]
  - TRANSFERRIN SATURATION DECREASED [None]
